FAERS Safety Report 4758854-5 (Version None)
Quarter: 2005Q3

REPORT INFORMATION
  Report Type: 
  Country: None (occurrence: None)
  Receive Date: 20050831
  Receipt Date: 20050815
  Transmission Date: 20060218
  Serious: Yes (Hospitalization)
  Sender: FDA-Public Use
  Company Number: TRP_0235_2005

PATIENT
  Age: 57 Year
  Sex: Male
  Weight: 78.4723 kg

DRUGS (2)
  1. RIBASPHERE [Suspect]
     Indication: HEPATITIS C
     Dosage: DF PO
     Route: 048
     Dates: start: 20050506, end: 20050706
  2. PEG-INTRON [Suspect]
     Indication: HEPATITIS C
     Dosage: DF SC
     Route: 058
     Dates: start: 20050506, end: 20050706

REACTIONS (5)
  - LUNG NEOPLASM MALIGNANT [None]
  - METASTASES TO LIVER [None]
  - METASTASES TO LYMPH NODES [None]
  - PNEUMONIA [None]
  - RED BLOOD CELL COUNT DECREASED [None]
